FAERS Safety Report 8488508-3 (Version None)
Quarter: 2012Q2

REPORT INFORMATION
  Report Type: 
  Country: None (occurrence: None)
  Receive Date: 20120626
  Receipt Date: 20120615
  Transmission Date: 20120825
  Serious: Yes (Life-Threatening, Hospitalization)
  Sender: FDA-Public Use
  Company Number: 2012MA007592

PATIENT
  Age: 73 Year

DRUGS (4)
  1. METFORMIN HYDROCHLORIDE [Suspect]
     Indication: DIABETES MELLITUS
     Dosage: 1500 MG;BID;PO
     Route: 048
     Dates: end: 20120406
  2. OMEPRAZOLE [Concomitant]
  3. ATORVASTATIN [Concomitant]
  4. CORODIL COMP [Concomitant]

REACTIONS (4)
  - ACUTE CORONARY SYNDROME [None]
  - ANURIA [None]
  - METABOLIC ACIDOSIS [None]
  - LACTIC ACIDOSIS [None]
